FAERS Safety Report 22601543 (Version 3)
Quarter: 2024Q1

REPORT INFORMATION
  Report Type: Spontaneous
  Country: US (occurrence: US)
  Receive Date: 20230614
  Receipt Date: 20240105
  Transmission Date: 20240410
  Serious: No
  Sender: FDA-Public Use
  Company Number: US-PFIZER INC-PV202300103702

PATIENT
  Age: 73 Year
  Sex: Female
  Weight: 79.002 kg

DRUGS (3)
  1. IBRANCE [Suspect]
     Active Substance: PALBOCICLIB
     Indication: Breast cancer metastatic
     Dosage: 75 MG/ 1 EVERYDAY ON DAYS 1-21 Q 28 DAYS
     Route: 048
     Dates: start: 202302
  2. FEMARA [Concomitant]
     Active Substance: LETROZOLE
     Dosage: 2.5MG PO(PER ORAL)
     Route: 048
     Dates: start: 202302
  3. XGEVA [Concomitant]
     Active Substance: DENOSUMAB
     Dosage: UNK

REACTIONS (6)
  - Hypoacusis [Unknown]
  - Red blood cell count decreased [Recovering/Resolving]
  - Haemoglobin decreased [Recovering/Resolving]
  - Haematocrit decreased [Recovering/Resolving]
  - Blood lactate dehydrogenase increased [Unknown]
  - Liver function test increased [Unknown]

NARRATIVE: CASE EVENT DATE: 20230401
